FAERS Safety Report 5371106-8 (Version None)
Quarter: 2007Q2

REPORT INFORMATION
  Report Type: 
  Country: None (occurrence: None)
  Receive Date: 20070614
  Receipt Date: 20070308
  Transmission Date: 20071010
  Serious: No
  Sender: FDA-Public Use
  Company Number: BDI-009217

PATIENT
  Age: 71 Year
  Sex: Male

DRUGS (1)
  1. MULTIHANCE [Suspect]
     Indication: DIAGNOSTIC PROCEDURE
     Dosage: SY

REACTIONS (2)
  - NAUSEA [None]
  - VOMITING [None]
